FAERS Safety Report 10225095 (Version 1)
Quarter: 2014Q2

REPORT INFORMATION
  Report Type: Spontaneous
  Country: US (occurrence: US)
  Receive Date: 20140609
  Receipt Date: 20140609
  Transmission Date: 20141212
  Serious: Yes (Other)
  Sender: FDA-Public Use
  Company Number: US-PFIZER INC-2014157496

PATIENT
  Age: 54 Year
  Sex: Female
  Weight: 113.38 kg

DRUGS (1)
  1. HYDROCORTISONE [Suspect]
     Indication: ADDISON^S DISEASE
     Dosage: 10MG IN THE MORNING AND 5MG IN AFTERNOON, 2X/DAY
     Dates: start: 2011

REACTIONS (1)
  - Diabetes mellitus [Unknown]
